FAERS Safety Report 5281245-8 (Version None)
Quarter: 2007Q1

REPORT INFORMATION
  Report Type: 
  Country: None (occurrence: None)
  Receive Date: 20070326
  Receipt Date: 20070313
  Transmission Date: 20070707
  Serious: Yes (Death, Hospitalization)
  Sender: FDA-Public Use
  Company Number: 2007SP004761

PATIENT
  Age: 47 Year
  Sex: Female
  Weight: 52 kg

DRUGS (3)
  1. PEG-INTRON (PEGINTERFERON ALA-2B) (PEGINTERFERON ALFA-2B) [Suspect]
     Indication: HEPATITIS C
     Dosage: 80 MCG;QW;SC; 40 MCG;QW;SC
     Route: 058
     Dates: end: 20070228
  2. PEG-INTRON (PEGINTERFERON ALA-2B) (PEGINTERFERON ALFA-2B) [Suspect]
     Indication: HEPATITIS C
     Dosage: 80 MCG;QW;SC; 40 MCG;QW;SC
     Route: 058
     Dates: start: 20061227
  3. REBETOL [Suspect]
     Indication: HEPATITIS C
     Dosage: 600 MG;QD;PO
     Route: 048
     Dates: start: 20061227, end: 20070228

REACTIONS (2)
  - CEREBRAL HAEMORRHAGE [None]
  - PLATELET COUNT DECREASED [None]
